FAERS Safety Report 10218433 (Version 3)
Quarter: 2014Q3

REPORT INFORMATION
  Report Type: Report from Study
  Country: JP (occurrence: JP)
  Receive Date: 20140605
  Receipt Date: 20140806
  Transmission Date: 20150326
  Serious: Yes (Other)
  Sender: FDA-Public Use
  Company Number: JP-AMGEN INC.-JPNCT2014040122

PATIENT
  Age: 72 Year
  Sex: Female
  Weight: 62 kg

DRUGS (7)
  1. PREDONINE [Concomitant]
     Active Substance: PREDNISOLONE\PREDNISOLONE ACETATE\PREDNISOLONE SODIUM SUCCINATE
     Indication: IMMUNE THROMBOCYTOPENIC PURPURA
     Dosage: 5 MG, UNK
     Route: 048
     Dates: start: 20120501, end: 20120529
  2. URSO                               /00465701/ [Concomitant]
     Indication: LIVER DISORDER
     Dosage: UNK
     Route: 048
  3. TSUMURA CHOREITO [Concomitant]
     Active Substance: UNSPECIFIED INGREDIENT
     Indication: IMMUNE THROMBOCYTOPENIC PURPURA
     Dosage: 7500 MG, UNK
     Route: 048
     Dates: start: 20120501, end: 20120918
  4. ROMIPLOSTIM - KHK [Suspect]
     Active Substance: ROMIPLOSTIM
     Indication: IMMUNE THROMBOCYTOPENIC PURPURA
     Dosage: 2 MUG/KG, QWK
     Route: 058
     Dates: start: 20120515
  5. GLAKAY [Concomitant]
     Indication: OSTEOPOROSIS
     Dosage: UNK
     Route: 048
  6. OMEPRAL                            /00661201/ [Concomitant]
     Active Substance: OMEPRAZOLE
     Indication: GASTROOESOPHAGEAL REFLUX DISEASE
     Dosage: UNK
     Route: 048
  7. CEPHARANTHINE [Concomitant]
     Active Substance: CEPHARANTHINE
     Indication: WHITE BLOOD CELL COUNT DECREASED
     Dosage: UNK
     Route: 048

REACTIONS (11)
  - Protein S deficiency [Not Recovered/Not Resolved]
  - Alanine aminotransferase increased [Recovered/Resolved]
  - Aspartate aminotransferase increased [Recovered/Resolved]
  - Aspartate aminotransferase increased [Recovered/Resolved]
  - Hypoalbuminaemia [Not Recovered/Not Resolved]
  - Thrombophlebitis [Recovering/Resolving]
  - Basophilia [Recovered/Resolved]
  - Monocyte count increased [Recovered/Resolved]
  - Blood potassium increased [Recovered/Resolved]
  - Alanine aminotransferase increased [Recovered/Resolved]
  - Blood chloride increased [Recovered/Resolved]

NARRATIVE: CASE EVENT DATE: 20120626
